FAERS Safety Report 9264519 (Version 2)
Quarter: 2013Q3

REPORT INFORMATION
  Report Type: Report from Study
  Country: US (occurrence: US)
  Receive Date: 20130501
  Receipt Date: 20130916
  Transmission Date: 20140515
  Serious: Yes (Hospitalization)
  Sender: FDA-Public Use
  Company Number: US-ROCHE-1219714

PATIENT
  Age: 70 Year
  Sex: Female
  Weight: 73 kg

DRUGS (8)
  1. CAPECITABINE [Suspect]
     Indication: BREAST CANCER METASTATIC
     Dosage: LAST DOSE TAKEN ON 04/APR/2013
     Route: 048
     Dates: start: 20130124, end: 20130314
  2. CAPECITABINE [Suspect]
     Dosage: CYCLE 4, DOSE REDUCED BY 25%
     Route: 048
     Dates: start: 20130418
  3. RAMUCIRUMAB [Suspect]
     Indication: BREAST CANCER METASTATIC
     Dosage: LAST DOSE TAKEN ON 28/MAR/2013
     Route: 042
     Dates: start: 20130124, end: 20130404
  4. LISINOPRIL [Concomitant]
  5. XGEVA [Concomitant]
  6. GLUCOPHAGE [Concomitant]
  7. LANTUS [Concomitant]
  8. BYETTA [Concomitant]
     Dosage: ROUTE:PEN DISPOSABLE
     Route: 065

REACTIONS (1)
  - Pleural effusion [Recovered/Resolved]
